FAERS Safety Report 9133650 (Version 1)
Quarter: 2013Q1

REPORT INFORMATION
  Report Type: Spontaneous
  Country: US (occurrence: US)
  Receive Date: 20130126
  Receipt Date: 20130126
  Transmission Date: 20140127
  Serious: No
  Sender: FDA-Public Use
  Company Number: US-009507513-1301USA004808

PATIENT
  Age: 18 Year
  Sex: Female

DRUGS (1)
  1. IMPLANON [Suspect]
     Indication: CONTRACEPTION
     Dosage: 1 ROD 3 YEAR USE
     Route: 059
     Dates: start: 20081104

REACTIONS (4)
  - Musculoskeletal stiffness [Unknown]
  - Headache [Unknown]
  - Hypoaesthesia [Unknown]
  - Incorrect drug administration duration [Unknown]
